FAERS Safety Report 5769735-2 (Version None)
Quarter: 2008Q2

REPORT INFORMATION
  Report Type: 
  Country: None (occurrence: None)
  Receive Date: 20080612
  Receipt Date: 20080410
  Transmission Date: 20081010
  Serious: No
  Sender: FDA-Public Use
  Company Number: US-ABBOTT-08P-163-0446685-00

PATIENT
  Sex: Male
  Weight: 81.72 kg

DRUGS (16)
  1. HUMIRA [Suspect]
     Indication: CROHN'S DISEASE
     Route: 058
     Dates: start: 20080229, end: 20080229
  2. HUMIRA [Suspect]
     Route: 058
     Dates: start: 20080307, end: 20080307
  3. HUMIRA [Suspect]
     Route: 058
  4. PREDNISONE TAB [Concomitant]
     Indication: CROHN'S DISEASE
     Route: 048
  5. MORNIFLUMATE [Concomitant]
     Indication: DRUG USE FOR UNKNOWN INDICATION
     Route: 048
  6. PROPYLTHIOURACIL [Concomitant]
     Indication: BASEDOW'S DISEASE
     Route: 048
  7. METOPROLOL [Concomitant]
     Indication: HYPERTENSION
     Route: 048
  8. ALPRAZOLAM [Concomitant]
     Indication: DEPRESSION
     Route: 048
  9. ESCITALOPRAM OXALATE [Concomitant]
     Indication: DEPRESSION
     Route: 048
  10. FUROSEMIDE [Concomitant]
     Indication: SWELLING
     Route: 048
  11. POTASSIUM CHLORIDE [Concomitant]
     Indication: MINERAL SUPPLEMENTATION
     Route: 048
  12. SIMVASTATIN [Concomitant]
     Indication: BLOOD CHOLESTEROL INCREASED
     Route: 048
  13. CLOPIDOGREL [Concomitant]
     Indication: ANTICOAGULANT THERAPY
     Route: 048
  14. ERGOCALCIFEROL [Concomitant]
     Indication: BONE DISORDER
  15. CALCIUM WITH VITAMIN D [Concomitant]
     Indication: OSTEOPOROSIS
     Route: 048
  16. CYANOCOBALAMIN [Concomitant]
     Indication: DRUG USE FOR UNKNOWN INDICATION

REACTIONS (6)
  - AGGRESSION [None]
  - ARTHRALGIA [None]
  - DIPLOPIA [None]
  - DYSPNOEA [None]
  - LACRIMATION INCREASED [None]
  - MOOD ALTERED [None]
